FAERS Safety Report 23443745 (Version 2)
Quarter: 2024Q1

REPORT INFORMATION
  Report Type: Spontaneous
  Country: CA (occurrence: CA)
  Receive Date: 20240125
  Receipt Date: 20240207
  Transmission Date: 20240410
  Serious: Yes (Death, Life-Threatening, Hospitalization, Disabling, Other)
  Sender: FDA-Public Use
  Company Number: CA-ORGANON-O2401CAN002008

PATIENT
  Age: 44 Year
  Sex: Female

DRUGS (169)
  1. FOSAMAX [Suspect]
     Active Substance: ALENDRONATE SODIUM
     Indication: Rheumatoid arthritis
     Dosage: DOSAGE FORM: NOT SPECIFIED
     Route: 048
  2. FOSAMAX [Suspect]
     Active Substance: ALENDRONATE SODIUM
     Dosage: 1 MILLIGRAM
     Route: 048
  3. FOSAMAX [Suspect]
     Active Substance: ALENDRONATE SODIUM
     Indication: Rheumatoid arthritis
     Dosage: DOSAGE FORM: NOT SPECIFIED
     Route: 065
  4. PREDNISONE [Suspect]
     Active Substance: PREDNISONE
     Indication: Rheumatoid arthritis
     Dosage: DOSAGE FORM: NOT SPECIFIED, DOSE: 10 MILLIGRAM, ROUTE OF ADMINISTRATION: ORAL
     Route: 048
  5. PREDNISONE [Suspect]
     Active Substance: PREDNISONE
     Indication: Psoriatic arthropathy
     Dosage: DOSAGE FORM: NOT SPECIFIED, DOSE: 7.5 MILLIGRAM, ROUTE OF ADMINISTRATION: ORAL
     Route: 048
  6. PREDNISONE [Suspect]
     Active Substance: PREDNISONE
     Indication: Condition aggravated
     Dosage: DOSAGE FORM: NOT SPECIFIED, DOSE: 40 MILLIGRAM, ROUTE OF ADMINISTRATION: ORAL
     Route: 048
  7. PREDNISONE [Suspect]
     Active Substance: PREDNISONE
     Indication: Rheumatoid arthritis
     Dosage: DOSAGE FORM: NOT SPECIFIED, DOSE: 5 MILLIGRAM, ROUTE OF ADMINISTRATION: UNKNOWN
     Route: 065
  8. PREDNISONE [Suspect]
     Active Substance: PREDNISONE
     Indication: Psoriatic arthropathy
     Dosage: DOSAGE FORM: NOT SPECIFIED, DOSE: 1 MILLIGRAM, ROUTE OF ADMINISTRATION: UNKNOWN
     Route: 065
  9. PREDNISONE [Suspect]
     Active Substance: PREDNISONE
     Indication: Condition aggravated
  10. PREDNISONE [Suspect]
     Active Substance: PREDNISONE
     Indication: Rheumatoid arthritis
     Dosage: DOSAGE FORM: NOT SPECIFIED, ROUTE OF ADMINISTRATION: INTRAVENOUS (NOT OTHERWISE SPECIFIED)
     Route: 042
  11. PREDNISONE [Suspect]
     Active Substance: PREDNISONE
     Indication: Psoriatic arthropathy
  12. PREDNISONE [Suspect]
     Active Substance: PREDNISONE
     Indication: Condition aggravated
  13. ACETAMINOPHEN [Suspect]
     Active Substance: ACETAMINOPHEN
     Indication: Rheumatoid arthritis
     Dosage: DOSAGE FORM: NOT SPECIFIED, DOSE: 10 MILLIGRAM, ROUT OF ADMINISTRATION: UNKNOWN
     Route: 065
  14. ACTEMRA [Suspect]
     Active Substance: TOCILIZUMAB
     Indication: Rheumatoid arthritis
     Dosage: 752.8 MILLIGRAM, DOSAGE FORM: SOLUTION FOR INFUSION, DOSE: 752.8 MILLIGRAM, ROUTE OF ADMINISTRATION:
     Route: 042
  15. ACTEMRA [Suspect]
     Active Substance: TOCILIZUMAB
     Dosage: 728 MILLIGRAM, DOSAGE FORM: SOLUTION FOR INFUSION, DOSE: 728 MILLIGRAM, ROUTE OF ADMINISTRATION: INT
     Route: 042
  16. ACTEMRA [Suspect]
     Active Substance: TOCILIZUMAB
     Dosage: 1 DOSAGE FORM, DOSAGE FORM: SOLUTION FOR INFUSION, DOSE: 1 DOSAGE FORM, ROUTE OF ADMINISTRATION: INT
     Route: 042
  17. ACTEMRA [Suspect]
     Active Substance: TOCILIZUMAB
     Dosage: 2912 MILLIGRAM, DOSAGE FORM: SOLUTION FOR INFUSION, DOSE: 2912 MILLIGRAM, ROUTE OF ADMINISTRATION: I
     Route: 042
  18. ACTEMRA [Suspect]
     Active Substance: TOCILIZUMAB
     Dosage: 3011 MILLIGRAM, DOSAGE FORM: SOLUTION FOR INFUSION, DOSE: 3011 MILLIGRAM, ROUTE OF ADMINISTRATION: I
     Route: 042
  19. ACTEMRA [Suspect]
     Active Substance: TOCILIZUMAB
     Dosage: 752 MILLIGRAM, DOSAGE FORM: SOLUTION FOR INFUSION, DOSE: 752 MILLIGRAM, ROUTE OF ADMINISTRATION: INT
     Route: 042
  20. ACTEMRA [Suspect]
     Active Substance: TOCILIZUMAB
     Indication: Rheumatoid arthritis
     Dosage: DOSAGE FORM: NOT SPECIFIED, ROUTE OF ADMINISTRATION: SUBCUTANEOUS
     Route: 058
  21. ADALIMUMAB [Suspect]
     Active Substance: ADALIMUMAB\ISOPROPYL ALCOHOL
     Indication: Psoriatic arthropathy
     Dosage: 40 MILLIGRAM, DOSAGE FORM: SOLUTION SUBCUTANEOUS, DOSE: 40 MILLIGRAM, ROUTE OF ADMINISTRATION: SUBCU
     Route: 058
  22. ADALIMUMAB [Suspect]
     Active Substance: ADALIMUMAB\ISOPROPYL ALCOHOL
     Indication: Psoriatic arthropathy
     Dosage: 40 MILLIGRAM, FORMULATION: SOLUTION SUBCUTANEOUS
     Route: 048
  23. PREDNISONE [Suspect]
     Active Substance: PREDNISONE
     Indication: Rheumatoid arthritis
     Dosage: DOSAGE FORM: TABLETS, DOSE: 1 MILLIGRAM, ROUTE OF ADMINISTRATION: UNKNOWN
     Route: 065
  24. PREDNISONE [Suspect]
     Active Substance: PREDNISONE
     Dosage: DOSAGE FORM: TABLETS, DOSE: 5 MILLIGRAM, ROUTE OF ADMINISTRATION: ORAL
     Route: 048
  25. ARAVA [Suspect]
     Active Substance: LEFLUNOMIDE
     Indication: Rheumatoid arthritis
     Dosage: 20 MILLIGRAM, 1 EVERY 1 DAYS
     Route: 048
  26. ARAVA [Suspect]
     Active Substance: LEFLUNOMIDE
     Dosage: 20 MILLIGRAM, 1 EVERY 1 DAYS
     Route: 048
  27. BORAGE OIL [Suspect]
     Active Substance: BORAGE OIL
     Indication: Product used for unknown indication
     Dosage: DOSAGE FORM: NOT SPECIFIED, ROUTE OF ADMINISTRATION: UNKNOWN
     Route: 065
  28. CALCIUM CARBONATE [Suspect]
     Active Substance: CALCIUM CARBONATE
     Indication: Product used for unknown indication
     Dosage: DOSAGE FORM: NOT SPECIFIED, ROUTE OF ADMINISTRATION: UNKNOWN
     Route: 065
  29. CALCIUM CARBONATE [Suspect]
     Active Substance: CALCIUM CARBONATE
     Dosage: DOSAGE FORM: NOT SPECIFIED, ROUTE OF ADMINISTRATION: UNKNOWN
     Route: 065
  30. CALCIUM CARBONATE [Suspect]
     Active Substance: CALCIUM CARBONATE
     Dosage: DOSAGE FORM: NOT SPECIFIED, ROUTE OF ADMINISTRATION: UNKNOWN
     Route: 065
  31. CELEBREX [Suspect]
     Active Substance: CELECOXIB
     Indication: Product used for unknown indication
     Dosage: 2 DOSAGE FORM, 1 EVERY 1 DAYS
     Route: 048
  32. CELECOXIB [Suspect]
     Active Substance: CELECOXIB
     Indication: Product used for unknown indication
     Dosage: 1 DOSAGE FORM, 1 EVERY 1 DAYS
     Route: 065
  33. CETIRIZINE [Suspect]
     Active Substance: CETIRIZINE HYDROCHLORIDE
     Indication: Rheumatoid arthritis
     Dosage: 10 MILLIGRAM, 1 EVERY 1 DAYS
     Route: 048
  34. CETIRIZINE [Suspect]
     Active Substance: CETIRIZINE HYDROCHLORIDE
     Indication: Off label use
     Dosage: 10 MILLIGRAM, 1 EVERY 1 DAYS
     Route: 048
  35. CETIRIZINE [Suspect]
     Active Substance: CETIRIZINE HYDROCHLORIDE
     Dosage: 25 MILLIGRAM, 1 EVERY 1 DAYS
     Route: 048
  36. CHLORAPREP [Suspect]
     Active Substance: CHLORHEXIDINE GLUCONATE\ISOPROPYL ALCOHOL
     Indication: Product used for unknown indication
     Dosage: DOSAGE FORM: SOLUTION, ROUT OF ADMINISTRATION: TOPICAL
     Route: 061
  37. CHLORHEXIDINE [Suspect]
     Active Substance: CHLORHEXIDINE\CHLORHEXIDINE GLUCONATE
     Indication: Product used for unknown indication
     Dosage: DOSAGE FORM: NOT SPECIFIED, ROUTE OF ADMINISTRATION: ORAL
     Route: 048
  38. CHLORHEXIDINE [Suspect]
     Active Substance: CHLORHEXIDINE\CHLORHEXIDINE GLUCONATE
     Indication: Product used for unknown indication
     Dosage: UNK
     Route: 061
  39. CHLORHEXIDINE [Suspect]
     Active Substance: CHLORHEXIDINE\CHLORHEXIDINE GLUCONATE
     Indication: Product used for unknown indication
     Dosage: DOSAGE FORM: NOT SPECIFIED, ROUTE OF ADMINISTRATION: BUCCAL
     Route: 002
  40. CIMZIA [Suspect]
     Active Substance: CERTOLIZUMAB PEGOL
     Indication: Rheumatoid arthritis
     Dosage: DOSAGE FORM: SOLUTION FOR INJECTION, DOSE: 40 MILLIGRAM, ROUTE OF ADMINISTRATION: UNKNOWN
     Route: 065
  41. CIMZIA [Suspect]
     Active Substance: CERTOLIZUMAB PEGOL
     Indication: Product used for unknown indication
     Dosage: UNK
     Route: 065
  42. CIMZIA [Suspect]
     Active Substance: CERTOLIZUMAB PEGOL
     Indication: Rheumatoid arthritis
     Dosage: 1 DOSAGE FORM, 1 EVERY 1 DAYS
     Route: 058
  43. CIMZIA [Suspect]
     Active Substance: CERTOLIZUMAB PEGOL
     Dosage: 1 DOSAGE FORM, 1 EVERY 1 DAYS
     Route: 058
  44. CIMZIA [Suspect]
     Active Substance: CERTOLIZUMAB PEGOL
     Dosage: 200 MILLIGRAM, 1 EVERY 1 DAYS
     Route: 058
  45. CORTISONE (HYDROCORTISONE) [Suspect]
     Active Substance: HYDROCORTISONE
     Indication: Rheumatoid arthritis
     Dosage: DOSAGE FORM: NOT SPECIFIED, DOSE: 25 MILLIGRAM, ROUTE OF ADMINISTRATION: TOPICAL
     Route: 061
  46. CORTISONE (HYDROCORTISONE) [Suspect]
     Active Substance: HYDROCORTISONE
     Indication: Rheumatoid arthritis
     Dosage: DOSAGE FORM: NOT SPECIFIED, DOSE: 25 MILLIGRAM, ROUTE OF ADMINISTRATION: ORAL
     Route: 048
  47. COSENTYX [Suspect]
     Active Substance: SECUKINUMAB
     Indication: Psoriatic arthropathy
     Dosage: ROUTE OF ADMINISTRATION: ENDOCERVICAL
     Route: 005
  48. COSENTYX [Suspect]
     Active Substance: SECUKINUMAB
     Indication: Rheumatoid arthritis
     Dosage: ROUTE OF ADMINISTRATION: UNKNOWN
     Route: 065
  49. DESOXIMETASONE [Suspect]
     Active Substance: DESOXIMETASONE
     Indication: Rheumatoid arthritis
     Dosage: 25 MILLIGRAM
     Route: 048
  50. DESOXIMETASONE [Suspect]
     Active Substance: DESOXIMETASONE
     Dosage: 25 MILLIGRAM, 1 EVERY 1 WEEKS
     Route: 048
  51. DESOXIMETASONE [Suspect]
     Active Substance: DESOXIMETASONE
     Dosage: DOSAGE FORM: NOT SPECIFIED, DOSE: 5 MILLIGRAM, ROUTE OF ADMINISTRATION: ORAL
     Route: 048
  52. DESOXIMETASONE [Suspect]
     Active Substance: DESOXIMETASONE
     Indication: Rheumatoid arthritis
     Dosage: DOSAGE FORM: NOT SPECIFIED, DOSE: 25 MILLIGRAM, ROUTE OF ADMINISTRATION: CUTANEOUS
     Route: 003
  53. DESOXIMETASONE [Suspect]
     Active Substance: DESOXIMETASONE
     Dosage: UNK
     Route: 058
  54. DESOXIMETASONE [Suspect]
     Active Substance: DESOXIMETASONE
     Dosage: UNK
     Route: 058
  55. DESOXIMETASONE [Suspect]
     Active Substance: DESOXIMETASONE
     Indication: Rheumatoid arthritis
     Dosage: UNK
     Route: 061
  56. DICLOFENAC POTASSIUM [Suspect]
     Active Substance: DICLOFENAC POTASSIUM
     Indication: Product used for unknown indication
     Dosage: DOSAGE FORM: TABLETS, ROUTE OF ADMINISTRATION: ORAL
     Route: 048
  57. DICLOFENAC SODIUM [Suspect]
     Active Substance: DICLOFENAC\DICLOFENAC SODIUM
     Indication: Product used for unknown indication
     Dosage: UNK
     Route: 048
  58. DICLOFENAC SODIUM [Suspect]
     Active Substance: DICLOFENAC\DICLOFENAC SODIUM
     Dosage: 50 MILLIGRAM
     Route: 065
  59. DICLOFENAC SODIUM [Suspect]
     Active Substance: DICLOFENAC\DICLOFENAC SODIUM
     Indication: Product used for unknown indication
     Dosage: DOSAGE FORM: NOT SPECIFIED, ROUTE OF ADMINISTRATION: SUBCUTANEOUS
     Route: 058
  60. DICLOFENAC SODIUM [Suspect]
     Active Substance: DICLOFENAC\DICLOFENAC SODIUM
     Indication: Product used for unknown indication
     Dosage: DOSAGE FORM: NOT SPECIFIED, ROUTE OF ADMINISTRATION: OPHTHALMIC
     Route: 047
  61. DOXYCYCLINE [Suspect]
     Active Substance: DOXYCYCLINE
     Indication: Product used for unknown indication
     Dosage: 40 MILLIGRAM
     Route: 065
  62. EMEND [Suspect]
     Active Substance: APREPITANT
     Indication: Product used for unknown indication
     Dosage: DOSAGE FORM: CAPSULES, DOSE: 5 MILLIGRAM
     Route: 048
  63. ENBREL [Suspect]
     Active Substance: ETANERCEPT
     Indication: Rheumatoid arthritis
     Dosage: 20 MILLIGRAM, 1 EVERY 1 WEEKS
     Route: 058
  64. ENBREL [Suspect]
     Active Substance: ETANERCEPT
     Indication: Psoriatic arthropathy
     Dosage: 50 MILLIGRAM, 1 EVERY 1 WEEKS
     Route: 058
  65. FOLIC ACID [Suspect]
     Active Substance: FOLIC ACID
     Indication: Rheumatoid arthritis
     Dosage: DOSAGE FORM: TABLETS, DOSE: 25 MILLIGRAM, ROUTE OF ADMINISTRATION: UNKNOWN
     Route: 065
  66. FOLIC ACID [Suspect]
     Active Substance: FOLIC ACID
     Dosage: DOSAGE FORM: TABLETS, DOSE: 0.5 MILLIGRAM, ROUTE OF ADMINISTRATION: ORAL
     Route: 048
  67. FOLIC ACID [Suspect]
     Active Substance: FOLIC ACID
     Dosage: DOSAGE FORM: TABLETS, DOSE: 5 MILLIGRAM, ROUTE OF ADMINISTRATION: ORAL
     Route: 048
  68. FOLIC ACID [Suspect]
     Active Substance: FOLIC ACID
     Dosage: DOSAGE FORM: TABLETS, DOSE: 500 MILLIGRAM, ROUTE OF ADMINISTRATION: ORAL
     Route: 048
  69. FOLIC ACID [Suspect]
     Active Substance: FOLIC ACID
     Dosage: DOSAGE FORM: TABLETS, DOSE: 15 MILLIGRAM, ROUTE OF ADMINISTRATION: ORAL
     Route: 048
  70. FOLIC ACID [Suspect]
     Active Substance: FOLIC ACID
     Dosage: DOSAGE FORM: TABLETS, DOSE: 1 MILLIGRAM, ROUTE OF ADMINISTRATION: ORAL
     Route: 048
  71. FOLIC ACID [Suspect]
     Active Substance: FOLIC ACID
     Dosage: 3 MILLIGRAM
     Route: 048
  72. GRAMICIDIN\NEOMYCIN SULFATE\NYSTATIN\TRIAMCINOLONE ACETONIDE [Suspect]
     Active Substance: GRAMICIDIN\NEOMYCIN SULFATE\NYSTATIN\TRIAMCINOLONE ACETONIDE
     Indication: Product used for unknown indication
     Dosage: DOSAGE FORM: NOT SPECIFIED
     Route: 065
  73. HUMIRA [Suspect]
     Active Substance: ADALIMUMAB
     Indication: Rheumatoid arthritis
     Dosage: 40 MILLIGRAM, DOSAGE FORM: NOT SPECIFIED, DOSE: 40 MILLIGRAM, ROUTE OF ADMINISTRATION: SUBCUTANEOUS
     Route: 058
  74. HUMIRA [Suspect]
     Active Substance: ADALIMUMAB
     Indication: Psoriatic arthropathy
     Dosage: 4 MILLIGRAM, DOSAGE FORM: NOT SPECIFIED, DOSE: 4 MILLIGRAM, ROUTE OF ADMINISTRATION: SUBCUTANEOUS
     Route: 058
  75. HUMIRA [Suspect]
     Active Substance: ADALIMUMAB
     Dosage: 400 MILLIGRAM, DOSAGE FORM: NOT SPECIFIED, DOSE: 400 MILLIGRAM, ROUTE OF ADMINISTRATION: SUBCUTANEOU
     Route: 058
  76. HYDROCORTISONE [Suspect]
     Active Substance: HYDROCORTISONE
     Indication: Rheumatoid arthritis
     Dosage: 25 MILLIGRAM, DOSAGE FORM: NOT SPECIFIED, DOSE: 25 MILLIGRAM, ROUTE OF ADMINISTRATION: 25 MIILLIGRAM
     Route: 058
  77. HYDROCORTISONE BUTYRATE [Suspect]
     Active Substance: HYDROCORTISONE BUTYRATE
     Indication: Rheumatoid arthritis
     Dosage: ROUTE OF ADMINISTRATION: UNKNOWN
     Route: 065
  78. HYDROCORTISONE BUTYRATE [Suspect]
     Active Substance: HYDROCORTISONE BUTYRATE
     Indication: Rheumatoid arthritis
     Dosage: ROUTE OF ADMINISTRATION: CUTANEOUS
     Route: 003
  79. HYDROCORTISONE SODIUM SUCCINATE [Suspect]
     Active Substance: HYDROCORTISONE SODIUM SUCCINATE
     Indication: Rheumatoid arthritis
     Dosage: 25 MILLIGRAM, DOSAGE FORM: POWDER FOR SOLUTION INTRAMUSCULAR, DOSE: 25 MILLIGRAM, ROUTE OF ADMINISTR
     Route: 048
  80. HYDROXYCHLOROQUINE SULFATE [Suspect]
     Active Substance: HYDROXYCHLOROQUINE SULFATE
     Indication: Systemic lupus erythematosus
     Dosage: DOSE: 400 MILLIGRAM, FREQUENCY: 1 EVERY 1 DAYS, ROUTE OF ADMINISTRATION: ORAL
     Route: 048
  81. HYDROXYCHLOROQUINE SULFATE [Suspect]
     Active Substance: HYDROXYCHLOROQUINE SULFATE
     Indication: Rheumatoid arthritis
     Dosage: DOSE: 5 MILLIGRAM, ROUTE OF ADMINISTRATION: ORAL
     Route: 048
  82. HYDROXYCHLOROQUINE SULFATE [Suspect]
     Active Substance: HYDROXYCHLOROQUINE SULFATE
     Dosage: DOSE: 400 MILLIGRAM, FREQUENCY: 1 EVERY 1 DAYS, ROUTE OF ADMINISTRATION: ORAL
     Route: 048
  83. HYDROXYCHLOROQUINE SULFATE [Suspect]
     Active Substance: HYDROXYCHLOROQUINE SULFATE
     Dosage: DOSE: 40 MILLIGRAM, FREQUENCY: 1 EVERY 1 DAYS, ROUTE OF ADMINISTRATION: ORAL
     Route: 048
  84. HYDROXYCHLOROQUINE SULFATE [Suspect]
     Active Substance: HYDROXYCHLOROQUINE SULFATE
     Indication: Systemic lupus erythematosus
     Dosage: DOSE: 40 MILLIGRAM, FREQUENCY: 1 EVERY 1 DAYS, ROUTE OF ADMINISTRATION: SUBCUTANEOUS
     Route: 058
  85. HYDROXYCHLOROQUINE SULFATE [Suspect]
     Active Substance: HYDROXYCHLOROQUINE SULFATE
     Indication: Rheumatoid arthritis
     Dosage: DOSE: 400 MILLIGRAM, FREQUENCY: 1 EVERY 1 DAYS, ROUTE OF ADMINISTRATION: SUBCUTANEOUS
     Route: 058
  86. INFLIXIMAB [Suspect]
     Active Substance: INFLIXIMAB
     Indication: Rheumatoid arthritis
     Dosage: DOSAGE FORM: NOT SPECIFIED, DOSE: 400 MILLIGRAM, ROUTE OF ADMINISTRATION: UNKNOWN
     Route: 065
  87. INFLIXIMAB [Suspect]
     Active Substance: INFLIXIMAB
     Indication: Rheumatoid arthritis
     Dosage: DOSAGE FORM: NOT SPECIFIED, ROUTE OF ADMINISTRATION: INTRAVENOUS (NOT OTHERWISE SPECIFIED), DOSE: 50
     Route: 042
  88. ISOPROPYL ALCOHOL [Suspect]
     Active Substance: ISOPROPYL ALCOHOL
     Indication: Product used for unknown indication
     Dosage: DOSAGE FORM: LIQUID TOPICAL, ROUTE OF ADMINISTRATION: UNKNOWN
     Route: 065
  89. LEFLUNOMIDE [Suspect]
     Active Substance: LEFLUNOMIDE
     Indication: Rheumatoid arthritis
     Dosage: DOSAGE FORM: TABLETS, DOSE: 20 MILLIGRAM, ROUTE OF ADMINISTRATION: ORAL
     Route: 048
  90. FLUMETHASONE PIVALATE [Suspect]
     Active Substance: FLUMETHASONE PIVALATE
     Indication: Rheumatoid arthritis
     Dosage: DOSAGE FORM: CREAM, ROUTE OF ADMINISTRATION: SUBCUTANEOUS
     Route: 058
  91. LYRICA [Suspect]
     Active Substance: PREGABALIN
     Indication: Product used for unknown indication
     Dosage: DOSAGE FORM: CAPUSLES, ROUTE OF ADMINISTRATION: UNKNOWN
     Route: 065
  92. METHOTREXATE [Suspect]
     Active Substance: METHOTREXATE
     Indication: Rheumatoid arthritis
     Dosage: DOSAGE FORM: SOLUTION INTRA-ARTERIAL, DOSE: 225 MILLIGRAM, ROUTE OF ADMINISTRATION: ORAL
     Route: 048
  93. METHOTREXATE [Suspect]
     Active Substance: METHOTREXATE
     Dosage: DOSAGE FORM: SOLUTION INTRA-ARTERIAL, DOSE: 2 DOSAGE FORM, FREQUENCY: 1 EVERY 1 DAYS, ROUTE OF ADMIN
     Route: 048
  94. METHOTREXATE [Suspect]
     Active Substance: METHOTREXATE
     Dosage: DOSAGE FORM: SOLUTION INTRA-ARTERIAL, DOSE: 15 MILLIGRAM, FREQUENCY: 1 EVERY 1 DAYS, ROUTE OF ADMINI
     Route: 048
  95. METHOTREXATE [Suspect]
     Active Substance: METHOTREXATE
     Dosage: DOSAGE FORM: SOLUTION INTRA-ARTERIAL, DOSE: 25 MILLIGRAM, FREQUENCY: 1 EVERY 1 DAYS, ROUTE OF ADMINI
     Route: 048
  96. METHOTREXATE [Suspect]
     Active Substance: METHOTREXATE
     Dosage: FORMULATION: SOLUTION INTRA- ARTERIAL, 20 MILLIGRAM, 1 EVERY 1 WEEKS
     Route: 048
  97. METHOTREXATE [Suspect]
     Active Substance: METHOTREXATE
     Indication: Rheumatoid arthritis
     Dosage: DOSAGE FORM: SOLUTION INTRA-ARTERIAL, DOSE: 25 MILLIGRAM, FREQUENCY: 1 EVERY 1 WEEK, ROUTE OF ADMINI
     Route: 058
  98. METHOTREXATE [Suspect]
     Active Substance: METHOTREXATE
     Dosage: DOSAGE FORM: SOLUTION INTRA-ARTERIAL, DOSE: 500 MILLIGRAM, FREQUENCY: 2 EVERY 1 DAYS, ROUTE OF ADMIN
     Route: 058
  99. METHOTREXATE [Suspect]
     Active Substance: METHOTREXATE
     Indication: Rheumatoid arthritis
     Dosage: DOSAGE FORM: SOLUTION INTRA-ARTERIAL, DOSE: 25 MILLIGRAM, FREQUENCY: 1 EVERY 1 DAYS, ROUTE OF ADMINI
     Route: 013
  100. METHOTREXATE [Suspect]
     Active Substance: METHOTREXATE
     Dosage: DOSAGE FORM: SOLUTION INTRA-ARTERIAL, DOSE: 25 MILLIGRAM, FREQUENCY: 1 EVERY 1 DAYS, ROUTE OF ADMINI
     Route: 013
  101. METHOTREXATE [Suspect]
     Active Substance: METHOTREXATE
     Indication: Rheumatoid arthritis
     Dosage: 500 MILLIGRAM, 1 EVERY 12 HOURS, FORMULATION: SOLUTION INTRA- ARTERIAL
     Route: 065
  102. METHOTREXATE [Suspect]
     Active Substance: METHOTREXATE
     Dosage: DOSAGE FORM: SOLUTION INTRA-ARTERIAL, ROUTE OF ADMINISTRATION: UNKNOWN
     Route: 065
  103. MYCOPHENOLATE MOFETIL [Suspect]
     Active Substance: MYCOPHENOLATE MOFETIL
     Indication: Product used for unknown indication
     Dosage: DOSAGE FORM: NOT SPECIFIED, ROUTE OF ADMINISTRATION: UNKNOWN
     Route: 065
  104. NAPROXEN SODIUM [Suspect]
     Active Substance: NAPROXEN\NAPROXEN SODIUM
     Indication: Rheumatoid arthritis
     Dosage: DOSAGE FORM: NOT SPECIFIED, DOSE: 500 MILLIGRAM, ROUTE OF ADMINISTRATION: UNKNOWN
     Route: 065
  105. NAPROXEN SODIUM [Suspect]
     Active Substance: NAPROXEN\NAPROXEN SODIUM
     Dosage: DOSAGE FORM: NOT SPECIFIED, DOSE: 500 MILLIGRAM, FREQUENCY: 1 EVERY 12 HOURS, ROUTE OF ADMINISTRATIO
     Route: 065
  106. ORENCIA [Suspect]
     Active Substance: ABATACEPT
     Indication: Rheumatoid arthritis
     Dosage: DOSE: 5 MILLIGRAM, ROUTE OF ADMINISTRATION: SUBCUTANEOUS
     Route: 058
  107. ORENCIA [Suspect]
     Active Substance: ABATACEPT
     Dosage: DOSE: 5 MILLIGRAM, ROUTE OF ADMINISTRATION: SUBCUTANEOUS
     Route: 058
  108. ORENCIA [Suspect]
     Active Substance: ABATACEPT
     Dosage: 125 MILLIGRAM
     Route: 058
  109. OTEZLA [Suspect]
     Active Substance: APREMILAST
     Indication: Rheumatoid arthritis
     Dosage: DOSE: 3 MILLIGRAM, FREQUENCY: 1 EVERY 12 HOURS, ROUTE OF ADMINISTRATION: ORAL
     Route: 048
  110. OTEZLA [Suspect]
     Active Substance: APREMILAST
     Indication: Rheumatoid arthritis
     Dosage: DOSE: 3 MILLIGRAM, ROUTE OF ADMINISTRATION: UNKNOWN
     Route: 065
  111. OXYCODONE [Suspect]
     Active Substance: OXYCODONE\OXYCODONE HYDROCHLORIDE
     Indication: Product used for unknown indication
     Dosage: DOSAGE FORM: NOT SPECIFIED, ROUTE OF ADMINISTRATION: UNKNOWN
     Route: 065
  112. PERIOGARD [Suspect]
     Active Substance: CHLORHEXIDINE GLUCONATE
     Indication: Product used for unknown indication
     Dosage: DOSAGE FORM: SOLUTION BUCCAL, ROUTE OF ADMINISTRATION: BUCCAL
     Route: 002
  113. PHTHALYLSULFATHIAZOLE [Suspect]
     Active Substance: PHTHALYLSULFATHIAZOLE
     Indication: Rheumatoid arthritis
     Dosage: DOSAGE FROM: NOT SPECIFIED, DOSE: 1000 MILLIGRAM, FREQUENCY: 1 EVERY 12 HOURS, ROUTE OF ADMINISTRATI
     Route: 048
  114. PHTHALYLSULFATHIAZOLE [Suspect]
     Active Substance: PHTHALYLSULFATHIAZOLE
     Dosage: DOSAGE FROM: NOT SPECIFIED, DOSE: 400 MILLIGRAM, ROUTE OF ADMINISTRATION: UNKNOWN
     Route: 065
  115. PHTHALYLSULFATHIAZOLE [Suspect]
     Active Substance: PHTHALYLSULFATHIAZOLE
     Dosage: DOSAGE FROM: NOT SPECIFIED, DOSE: 500 MILLIGRAM, ROUTE OF ADMINISTRATION: ORAL
     Route: 048
  116. PHTHALYLSULFATHIAZOLE [Suspect]
     Active Substance: PHTHALYLSULFATHIAZOLE
     Dosage: DOSAGE FROM: NOT SPECIFIED, DOSE: 2000 MILLIGRAM, ROUTE OF ADMINISTRATION: ORAL
     Route: 048
  117. PHTHALYLSULFATHIAZOLE [Suspect]
     Active Substance: PHTHALYLSULFATHIAZOLE
     Indication: Rheumatoid arthritis
     Dosage: DOSAGE FROM: NOT SPECIFIED, ROUTE OF ADMINISTRATION: INTRACARDIAC
     Route: 016
  118. PREGABALIN [Suspect]
     Active Substance: PREGABALIN
     Indication: Product used for unknown indication
     Dosage: DOSAGE FORM: CAPSULES, ROUTE OF ADMINISTRATION: UNKNOWN
     Route: 065
  119. PSEUDOEPHEDRINE [Suspect]
     Active Substance: PSEUDOEPHEDRINE
     Indication: Rheumatoid arthritis
     Dosage: DOSAGE FORM: NOT SPECIFIED, DOSE: 10 MILLIGRAM, ROUTE OF ADMINISTRATION: UNKNOWN
     Route: 065
  120. PSEUDOEPHEDRINE [Suspect]
     Active Substance: PSEUDOEPHEDRINE
     Dosage: DOSAGE FORM: NOT SPECIFIED, DOSE: 25 MILLIGRAM, ROUTE OF ADMINISTRATION: UNKNOWN
     Route: 065
  121. CETIRIZINE HYDROCHLORIDE\PSEUDOEPHEDRINE HYDROCHLORIDE [Suspect]
     Active Substance: CETIRIZINE HYDROCHLORIDE\PSEUDOEPHEDRINE HYDROCHLORIDE
     Indication: Rheumatoid arthritis
     Dosage: DOSAGE FORM: TABLET (EXTENDED RELEASE), DOSE: 25 MILLIGRAM, ROUTE OF ADMINISTRATION: UNKNOWN
     Route: 065
  122. CETIRIZINE HYDROCHLORIDE\PSEUDOEPHEDRINE HYDROCHLORIDE [Suspect]
     Active Substance: CETIRIZINE HYDROCHLORIDE\PSEUDOEPHEDRINE HYDROCHLORIDE
     Dosage: 10 MILLIGRAM
     Route: 048
  123. CETIRIZINE HYDROCHLORIDE\PSEUDOEPHEDRINE HYDROCHLORIDE [Suspect]
     Active Substance: CETIRIZINE HYDROCHLORIDE\PSEUDOEPHEDRINE HYDROCHLORIDE
     Dosage: DOSAGE FORM: TABLET (EXTENDED RELEASE), DOSE: 10 MILLIGRAM, ROUTE OF ADMINISTRATION: UNKNOWN
     Route: 065
  124. REMICADE [Suspect]
     Active Substance: INFLIXIMAB
     Indication: Rheumatoid arthritis
     Dosage: 500 MILLIGRAM, DOSAGE FORM: POWDER FOR SOLUTION INTRAVENOUS, ROUTE OF ADMINISTRATION: INTRAVENOUS (N
     Route: 042
  125. REMICADE [Suspect]
     Active Substance: INFLIXIMAB
     Dosage: DOSAGE FORM: POWDER FOR SOLUTION INTRAVENOUS, ROUTE OF ADMINISTRATION: INTRAVENOUS (NOT OTHERWISE SP
     Route: 042
  126. REMICADE [Suspect]
     Active Substance: INFLIXIMAB
     Dosage: 500 MILLIGRAM, DOSAGE FORM: NOT SPECIFIED, ROUTE OF ADMINISTRATION: INTRAVENOUS (NOT OTHERWISE SPECI
     Route: 042
  127. REMICADE [Suspect]
     Active Substance: INFLIXIMAB
     Indication: Rheumatoid arthritis
     Dosage: 400 MILLIGRAM, DOSAGE FORM: NOT SPECIFIED, DOSE: 400 MILLIGRAM, ROUTE OF ADMINISTRATION: UNKNOWN
     Route: 065
  128. RITUXIMAB [Suspect]
     Active Substance: RITUXIMAB
     Indication: Rheumatoid arthritis
     Dosage: ROUTE OF ADMINISTRATION: SUBCUTANEOUS
     Route: 058
  129. RITUXIMAB [Suspect]
     Active Substance: RITUXIMAB
     Indication: Rheumatoid arthritis
     Dosage: ROUTE OF ADMINISTRATION: INTRAVENOUS (NOT OTHERWISE SPECIFIED)
     Route: 042
  130. RITUXIMAB [Suspect]
     Active Substance: RITUXIMAB
     Dosage: ROUTE OF ADMINISTRATION: INTRAVENOUS (NOT OTHERWISE SPECIFIED)
     Route: 042
  131. SULFASALAZINE [Suspect]
     Active Substance: SULFASALAZINE
     Indication: Rheumatoid arthritis
     Dosage: DOSAGE FORM: NOT SPECIFIED, DOSE: 1000 MILLIGRAM, FREQUENCY: 1 EVERY 12 HOURS, ROUTE OF ADMINISTRATI
     Route: 048
  132. SULFASALAZINE [Suspect]
     Active Substance: SULFASALAZINE
     Dosage: DOSAGE FORM: NOT SPECIFIED, DOSE: 1 GRAM, ROUTE OF ADMINISTRATION: ORAL
     Route: 048
  133. SULFASALAZINE [Suspect]
     Active Substance: SULFASALAZINE
     Dosage: DOSAGE FORM: NOT SPECIFIED, DOSE: 1 GRAM, FREQUENCY: 1 EVERY 12 HOURS, ROUTE OF ADMINISTRATION: ORAL
     Route: 048
  134. SULFASALAZINE [Suspect]
     Active Substance: SULFASALAZINE
     Dosage: DOSAGE FORM: NOT SPECIFIED, DOSE: 500 MILLIGRAM, ROUTE OF ADMINISTRATION: ORAL
     Route: 048
  135. SIMPONI [Suspect]
     Active Substance: GOLIMUMAB
     Indication: Rheumatoid arthritis
     Dosage: DOSAGE FORM: SOLUTION SUBCUTANEOUS, ROUTE OF ADMINISTRATION: SUBCUTANEOUS
     Route: 058
  136. SIMPONI [Suspect]
     Active Substance: GOLIMUMAB
     Indication: Psoriatic arthropathy
     Dosage: 50 MILLIGRAM, DOSAGE FORM: SOLUTION SUBCUTANEOUS, ROUTE OF ADMINISTRATION: SUBCUTANEOUS, DOSE: 50 MI
     Route: 058
  137. SIMPONI [Suspect]
     Active Substance: GOLIMUMAB
     Dosage: DOSAGE FORM: SOLUTION SUBCUTANEOUS, ROUTE OF ADMINISTRATION: SUBCUTANEOUS
     Route: 058
  138. SIMPONI [Suspect]
     Active Substance: GOLIMUMAB
     Indication: Rheumatoid arthritis
     Dosage: DOSAGE FORM: SOLUTION SUBCUTANEOUS, ROUTE OF ADMINISTRATION: PERIARTICULAR
     Route: 052
  139. SIMPONI [Suspect]
     Active Substance: GOLIMUMAB
     Indication: Psoriatic arthropathy
  140. SIMPONI [Suspect]
     Active Substance: GOLIMUMAB
     Indication: Rheumatoid arthritis
     Dosage: DOSAGE FORM: SOLUTION SUBCUTANEOUS, ROUTE OF ADMINISTRATION: UNKNOWN
     Route: 065
  141. SIMPONI [Suspect]
     Active Substance: GOLIMUMAB
     Indication: Psoriatic arthropathy
  142. STELARA [Suspect]
     Active Substance: USTEKINUMAB
     Indication: Product used for unknown indication
     Dosage: DOSAGE FORM: SOLUTION SUBCUTANEOUS, DOSE: 45 MILLIGRAM, ROUTE OF ADMINISTRATION: INTRAVENOUS (NOT OT
     Route: 042
  143. STELARA [Suspect]
     Active Substance: USTEKINUMAB
     Indication: Psoriatic arthropathy
     Dosage: DOSAGE FORM: SOLUTION SUBCUTANEOUS, ROUTE OF ADMINISTRATION: INTRAVENOUS (NOT OTHERWISE SPECIFIED)
     Route: 042
  144. STELARA [Suspect]
     Active Substance: USTEKINUMAB
     Indication: Product used for unknown indication
     Dosage: DOSAGE FORM: SOLUTION SUBCUTANEOUS, DOSE: 45 MILLIGRAM, ROUTE OF ADMINISTRATION: SUBCUTANEOUS
     Route: 058
  145. STELARA [Suspect]
     Active Substance: USTEKINUMAB
     Indication: Psoriatic arthropathy
     Dosage: DOSAGE FORM: SOLUTION SUBCUTANEOUS, DOSE: 45 MILLIGRAM, ROUTE OF ADMINISTRATION: SUBCUTANEOUS
     Route: 058
  146. SULFAMETHOXAZOLE AND TRIMETHOPRIM [Suspect]
     Active Substance: SULFAMETHOXAZOLE\TRIMETHOPRIM
     Indication: Product used for unknown indication
     Dosage: DOSAGE FORM: NOT SPECIFIED, ROUTE OF ADMINISTRATION: UNKNOWN
     Route: 065
  147. SULFAMETHOXAZOLE AND TRIMETHOPRIM [Suspect]
     Active Substance: SULFAMETHOXAZOLE\TRIMETHOPRIM
     Dosage: DOSAGE FORM: NOT SPECIFIED, ROUTE OF ADMINISTRATION: UNKNOWN
     Route: 065
  148. SULFASALAZINE [Suspect]
     Active Substance: SULFASALAZINE
     Indication: Product used for unknown indication
     Dosage: DOSAGE FORM: NOT SPECIFIED, DOSE: 2000 MILLIGRAM, ROUTE OF ADMINISTRATION: ORAL
     Route: 048
  149. SULFASALAZINE [Suspect]
     Active Substance: SULFASALAZINE
     Dosage: DOSAGE FORM: NOT SPECIFIED, DOSE: 4000 MILLIGRAM, FREQUENCY: 1 EVERY 12 HOURS, ROUTE OF ADMINISTRATI
     Route: 048
  150. SULFASALAZINE [Suspect]
     Active Substance: SULFASALAZINE
     Dosage: DOSAGE FORM: NOT SPECIFIED, DOSE: 2 GRAM, ROUTE OF ADMINISTRATION: UNKNOWN
     Route: 065
  151. SULFASALAZINE [Suspect]
     Active Substance: SULFASALAZINE
     Dosage: DOSAGE FORM: NOT SPECIFIED, DOSE: 500 MILLIGRAM, FREQUENCY: 1 EVERY 12 HOURS, ROUTE OF ADMINISTRATIO
     Route: 048
  152. SULFASALAZINE [Suspect]
     Active Substance: SULFASALAZINE
     Dosage: DOSAGE FORM: NOT SPECIFIED, DOSE: 1000 MILLIGRAM, FREQUENCY: 1 EVERY 1 DAYS, ROUTE OF ADMINISTRATION
     Route: 048
  153. TRAMADOL HYDROCHLORIDE [Suspect]
     Active Substance: TRAMADOL HYDROCHLORIDE
     Indication: Product used for unknown indication
     Dosage: DOSAGE FORM: NOT SPECIFIED, ROUTE OF ADMINISTRATION: UNKNOWN
     Route: 065
  154. TRIAMCINOLONE ACETONIDE [Suspect]
     Active Substance: TRIAMCINOLONE ACETONIDE
     Indication: Rheumatoid arthritis
     Dosage: DOSAGE FORM: SUSPENSION INTRA-ARTICULAR, ROUTE O ADMINISTRATION: INTRA-ARTICULAR
     Route: 013
  155. CYANOCOBALAMIN\FOLIC ACID [Suspect]
     Active Substance: CYANOCOBALAMIN\FOLIC ACID
     Indication: Product used for unknown indication
     Dosage: DOSAGE FORM: NOT SPECIFIED, ROUTE OF ADMINISTRATION: UNKNOWN
     Route: 065
  156. DICLOFENAC SODIUM [Suspect]
     Active Substance: DICLOFENAC\DICLOFENAC SODIUM
     Indication: Product used for unknown indication
     Dosage: DOSAGE FORM: NOT SPECIFIED, ROUTE OF ADMINISTRATION: UNKNOWN
     Route: 065
  157. PREDNISONE [Suspect]
     Active Substance: PREDNISONE
     Indication: Rheumatoid arthritis
     Dosage: DOSAGE FORM: TABLET, ROUTE OF ADMINISTRATION: ORAL
     Route: 048
  158. XELJANZ [Suspect]
     Active Substance: TOFACITINIB CITRATE
     Indication: Rheumatoid arthritis
     Dosage: DOSAGE FORM: NOT SPECIFIED, DOSE: 5 MILLIGRAM, ROUTE OF ADMINISTRATION: ORAL
     Route: 048
  159. XELJANZ [Suspect]
     Active Substance: TOFACITINIB CITRATE
     Indication: Psoriatic arthropathy
     Dosage: DOSAGE FORM: NOT SPECIFIED, DOSE: 5 MILLIGRAM, FREQUENCY: 1 EVERY 1 WEEKS, ROUTE OF ADMINISTRATION:
     Route: 048
  160. XELJANZ [Suspect]
     Active Substance: TOFACITINIB CITRATE
     Dosage: 5 MILLIGRAM
     Route: 048
  161. XELJANZ [Suspect]
     Active Substance: TOFACITINIB CITRATE
     Indication: Rheumatoid arthritis
     Dosage: DOSAGE FORM: NOT SPECIFIED, DOSE: 10 MILLIGRAM, FREQUENCY: 1 EVERY 1 DAYS, ROUTE OF ADMINISTRATION:
     Route: 065
  162. XELJANZ [Suspect]
     Active Substance: TOFACITINIB CITRATE
     Indication: Psoriatic arthropathy
     Dosage: DOSAGE FORM: NOT SPECIFIED, DOSE: 5 MILLIGRAM, FREQUENCY: 1 EVERY 12 HOURS, ROUTE OF ADMINISTRATION:
     Route: 065
  163. CETIRIZINE HYDROCHLORIDE [Suspect]
     Active Substance: CETIRIZINE HYDROCHLORIDE
     Indication: Rheumatoid arthritis
     Dosage: DOSE: 10 MILLIGRAM, FREQUENCY: 1 EVERY 1 DAYS, ROUTE OF ADMINISTRATION: ORAL
     Route: 048
  164. CETIRIZINE HYDROCHLORIDE [Suspect]
     Active Substance: CETIRIZINE HYDROCHLORIDE
     Indication: Off label use
     Dosage: DOSE: 25 MILLIGRAM, ROUTE OF ADMINISTRATION: ORAL
     Route: 048
  165. CETIRIZINE HYDROCHLORIDE [Suspect]
     Active Substance: CETIRIZINE HYDROCHLORIDE
     Dosage: DOSE: 25 MILLIGRAM, ROUTE OF ADMINISTRATION: ORAL
     Route: 048
  166. CETIRIZINE HYDROCHLORIDE [Suspect]
     Active Substance: CETIRIZINE HYDROCHLORIDE
     Dosage: DOSE: 10 MILLIGRAM, FREQUENCY: 1 EVERY 1 DAYS, ROUTE OF ADMINISTRATION: ORAL
     Route: 048
  167. CETIRIZINE HYDROCHLORIDE [Suspect]
     Active Substance: CETIRIZINE HYDROCHLORIDE
     Indication: Rheumatoid arthritis
     Dosage: ROUTE OF ADMINISTRATION: UNKNOWN
     Route: 065
  168. CETIRIZINE HYDROCHLORIDE [Suspect]
     Active Substance: CETIRIZINE HYDROCHLORIDE
     Indication: Off label use
  169. CALCIUM GLUBIONATE [Suspect]
     Active Substance: CALCIUM GLUBIONATE
     Indication: Product used for unknown indication
     Dosage: UNK
     Route: 065

REACTIONS (52)
  - C-reactive protein [Fatal]
  - Dry mouth [Fatal]
  - Duodenal ulcer perforation [Fatal]
  - Facet joint syndrome [Fatal]
  - Fatigue [Fatal]
  - Fibromyalgia [Fatal]
  - Folliculitis [Fatal]
  - General physical health deterioration [Fatal]
  - Glossodynia [Fatal]
  - Hand deformity [Fatal]
  - Helicobacter infection [Fatal]
  - Hepatic enzyme increased [Fatal]
  - Hypersensitivity [Fatal]
  - Hypertension [Fatal]
  - Hypoaesthesia [Fatal]
  - Ill-defined disorder [Fatal]
  - Impaired healing [Fatal]
  - Infection [Fatal]
  - Inflammation [Fatal]
  - Infusion related reaction [Fatal]
  - Injury [Fatal]
  - Insomnia [Fatal]
  - Irritable bowel syndrome [Fatal]
  - Joint range of motion decreased [Fatal]
  - Joint swelling [Fatal]
  - Lip dry [Fatal]
  - Liver disorder [Fatal]
  - Malaise [Fatal]
  - Mobility decreased [Fatal]
  - Pruritus [Fatal]
  - Psoriatic arthropathy [Fatal]
  - Pyrexia [Fatal]
  - Rash [Fatal]
  - Rheumatic fever [Fatal]
  - Rheumatoid arthritis [Fatal]
  - Rheumatoid factor positive [Fatal]
  - Road traffic accident [Fatal]
  - Sciatica [Fatal]
  - Sinusitis [Fatal]
  - Sleep disorder [Fatal]
  - Sleep disorder due to general medical condition, insomnia type [Fatal]
  - Stomatitis [Fatal]
  - Swelling [Fatal]
  - Swollen joint count increased [Fatal]
  - Synovitis [Fatal]
  - Systemic lupus erythematosus [Fatal]
  - Type 2 diabetes mellitus [Fatal]
  - Urticaria [Fatal]
  - Vomiting [Fatal]
  - Weight increased [Fatal]
  - Wheezing [Fatal]
  - Wound [Fatal]
